FAERS Safety Report 4555782-5 (Version None)
Quarter: 2005Q1

REPORT INFORMATION
  Report Type: 
  Country: None (occurrence: None)
  Receive Date: 20050112
  Receipt Date: 20040505
  Transmission Date: 20050727
  Serious: Yes (Hospitalization)
  Sender: FDA-Public Use
  Company Number: 206347

PATIENT
  Sex: Female

DRUGS (1)
  1. ACTIVASE [Suspect]
     Indication: ARTERIAL THROMBOSIS LIMB
     Dosage: 4 MG, X2 -  2.5 MG, SINGLE, INTRAVENOUS SEE IMAGE
     Route: 042

REACTIONS (1)
  - SUBDURAL HAEMATOMA [None]
